FAERS Safety Report 4936417-6 (Version None)
Quarter: 2006Q1

REPORT INFORMATION
  Report Type: 
  Country: None (occurrence: None)
  Receive Date: 20060127
  Receipt Date: 20051201
  Transmission Date: 20060701
  Serious: Yes (Other)
  Sender: FDA-Public Use
  Company Number: 2005164569

PATIENT
  Age: 76 Year
  Sex: Female
  Weight: 72.5755 kg

DRUGS (8)
  1. LYRICA [Suspect]
     Indication: NEURALGIA
     Dosage: 100 MG (50 MG, 2 IN 1 D), ORAL
     Route: 048
     Dates: start: 20051122
  2. NEURONTIN [Suspect]
     Indication: NEURALGIA
     Dosage: 100 MG (100 MG, 1 IN 1 D), ORAL
     Route: 048
     Dates: start: 20040101, end: 20040101
  3. VICODIN [Concomitant]
  4. METHOCARBAMOL [Concomitant]
  5. PLAVIX [Concomitant]
  6. VENTOLIN [Concomitant]
  7. FLOVENT [Concomitant]
  8. NORCO [Concomitant]

REACTIONS (8)
  - ASTHENIA [None]
  - FEELING ABNORMAL [None]
  - JOINT SWELLING [None]
  - MUSCLE TIGHTNESS [None]
  - MYALGIA [None]
  - PAIN [None]
  - SENSATION OF HEAVINESS [None]
  - TREMOR [None]
